FAERS Safety Report 5001810-2 (Version None)
Quarter: 2006Q2

REPORT INFORMATION
  Report Type: 
  Country: None (occurrence: None)
  Receive Date: 20060512
  Receipt Date: 20060512
  Transmission Date: 20061013
  Serious: Yes (Life-Threatening, Hospitalization)
  Sender: FDA-Public Use
  Company Number: None

PATIENT
  Age: 58 Year
  Sex: Female
  Weight: 88 kg

DRUGS (1)
  1. DEPODUR [Suspect]
     Indication: PAIN
     Dosage: 12.5MG ONCE EPIDURAL
     Route: 008
     Dates: start: 20060503, end: 20060503

REACTIONS (3)
  - APNOEA [None]
  - OXYGEN SATURATION DECREASED [None]
  - POST PROCEDURAL NAUSEA [None]
